FAERS Safety Report 25595193 (Version 1)
Quarter: 2025Q3

REPORT INFORMATION
  Report Type: Spontaneous
  Country: EU (occurrence: EU)
  Receive Date: 20250723
  Receipt Date: 20250723
  Transmission Date: 20251020
  Serious: Yes (Other)
  Sender: NOVARTIS
  Company Number: EU-002147023-NVSC2025SK114635

PATIENT
  Sex: Female

DRUGS (1)
  1. KISQALI [Suspect]
     Active Substance: RIBOCICLIB SUCCINATE
     Indication: Product used for unknown indication
     Dosage: 200 MG, BID (2X200 MG DAILY FOR 21 DAYS AND 7 DAYS FREE, RESULTING IN A  COMPLETE CYCLE OF 28 DAYS)
     Route: 048
     Dates: start: 20230515, end: 20250626

REACTIONS (1)
  - Disease progression [Unknown]
